FAERS Safety Report 8511684-0 (Version None)
Quarter: 2012Q3

REPORT INFORMATION
  Report Type: 
  Country: None (occurrence: None)
  Receive Date: 20120716
  Receipt Date: 20120703
  Transmission Date: 20120928
  Serious: Yes (Death)
  Sender: FDA-Public Use
  Company Number: US-SANOFI-AVENTIS-2012SA038706

PATIENT
  Age: 77 Year
  Sex: Female
  Weight: 59.1 kg

DRUGS (8)
  1. OXYCONTIN [Concomitant]
  2. SEVELAMER [Concomitant]
  3. PLAVIX [Suspect]
     Route: 048
     Dates: start: 20081027, end: 20120214
  4. TYLENOL PM [Concomitant]
  5. TRAMADOL HCL [Concomitant]
  6. ZOLOFT [Concomitant]
  7. VENTOLIN [Concomitant]
  8. METOPROLOL TARTRATE [Concomitant]

REACTIONS (2)
  - LUNG CANCER METASTATIC [None]
  - RENAL FAILURE CHRONIC [None]
